FAERS Safety Report 7073899-0 (Version None)
Quarter: 2010Q4

REPORT INFORMATION
  Report Type: 
  Country: None (occurrence: None)
  Receive Date: 20101029
  Receipt Date: 20101022
  Transmission Date: 20110411
  Serious: Yes (Other)
  Sender: FDA-Public Use
  Company Number: US-ABBOTT-10P-163-0680978-00

PATIENT
  Sex: Male
  Weight: 83.536 kg

DRUGS (3)
  1. HUMIRA [Suspect]
     Indication: PSORIASIS
     Dosage: ONCE
     Dates: start: 20100917, end: 20100917
  2. HUMIRA [Suspect]
     Dosage: ONCE
     Dates: start: 20100925, end: 20100925
  3. METHOTREXATE [Concomitant]
     Indication: PRODUCT USED FOR UNKNOWN INDICATION

REACTIONS (8)
  - AORTIC VALVE STENOSIS [None]
  - ARTHRALGIA [None]
  - CARDIAC VALVE DISEASE [None]
  - DIZZINESS [None]
  - DYSPNOEA [None]
  - JOINT SWELLING [None]
  - MITRAL VALVE CALCIFICATION [None]
  - PYREXIA [None]
